FAERS Safety Report 9186475 (Version 1)
Quarter: 2013Q1

REPORT INFORMATION
  Report Type: Spontaneous
  Country: FR (occurrence: FR)
  Receive Date: 20130325
  Receipt Date: 20130325
  Transmission Date: 20140127
  Serious: Yes (Life-Threatening, Hospitalization)
  Sender: FDA-Public Use
  Company Number: FR-ASTRAZENECA-2013SE18884

PATIENT
  Age: 18171 Day
  Sex: Female

DRUGS (7)
  1. ATACAND [Suspect]
     Indication: CARDIAC FAILURE
     Route: 048
     Dates: start: 20120419, end: 20120428
  2. ESIDREX [Suspect]
     Indication: CARDIAC FAILURE
     Route: 048
     Dates: start: 201204, end: 20120428
  3. ALDACTONE [Suspect]
     Route: 048
     Dates: start: 201204, end: 20120428
  4. LASILIX [Suspect]
     Indication: CARDIAC FAILURE
     Route: 048
     Dates: start: 201204, end: 20120428
  5. DETENSIEL [Concomitant]
  6. COUMADINE [Concomitant]
  7. BISOCE [Concomitant]

REACTIONS (8)
  - Hypovolaemic shock [Recovered/Resolved]
  - Renal failure acute [Recovered/Resolved]
  - Post procedural haemorrhage [None]
  - Salpingo-oophorectomy [None]
  - Hysterectomy [None]
  - Overdose [None]
  - International normalised ratio increased [None]
  - Cardiac failure [None]
